FAERS Safety Report 4717726-2 (Version None)
Quarter: 2005Q3

REPORT INFORMATION
  Report Type: 
  Country: None (occurrence: None)
  Receive Date: 20050713
  Receipt Date: 20050321
  Transmission Date: 20060218
  Serious: Yes (Other)
  Sender: FDA-Public Use
  Company Number: HQWYE475829MAR05

PATIENT
  Age: 69 Year
  Sex: Female
  Weight: 63.11 kg

DRUGS (1)
  1. ALAVERT [Suspect]
     Indication: HYPERSENSITIVITY
     Dosage: 1 TABLET 1X PER 1 DAY, ORAL
     Route: 048
     Dates: start: 20040101

REACTIONS (1)
  - GLOSSODYNIA [None]
